FAERS Safety Report 8658234 (Version 6)
Quarter: 2014Q2

REPORT INFORMATION
  Report Type: Spontaneous
  Country: JP (occurrence: JP)
  Receive Date: 20120710
  Receipt Date: 20140424
  Transmission Date: 20141212
  Serious: Yes (Death, Hospitalization)
  Sender: FDA-Public Use
  Company Number: JP-GLAXOSMITHKLINE-B0813627A

PATIENT
  Age: 71 Year
  Sex: Female
  Weight: 45 kg

DRUGS (3)
  1. HYCAMTIN [Suspect]
     Indication: SEROUS CYSTADENOCARCINOMA OVARY
     Dosage: 1.5MG PER DAY
     Route: 042
     Dates: start: 20120604, end: 20120608
  2. DECADRON [Concomitant]
     Dosage: 3.3MG PER DAY
     Route: 042
     Dates: start: 20120604, end: 20120608
  3. HEPARIN SODIUM [Concomitant]
     Dosage: 100IU PER DAY

REACTIONS (4)
  - Hepatic function abnormal [Fatal]
  - Oedema peripheral [Not Recovered/Not Resolved]
  - Pleural effusion [Not Recovered/Not Resolved]
  - Jaundice cholestatic [Fatal]
